FAERS Safety Report 25363515 (Version 3)
Quarter: 2025Q3

REPORT INFORMATION
  Report Type: Spontaneous
  Country: CN (occurrence: CN)
  Receive Date: 20250527
  Receipt Date: 20250808
  Transmission Date: 20251021
  Serious: Yes (Hospitalization, Other)
  Sender: PFIZER
  Company Number: CN-PFIZER INC-PV202500061684

PATIENT
  Age: 25 Year
  Sex: Male

DRUGS (27)
  1. XYNTHA [Suspect]
     Active Substance: MOROCTOCOG ALFA
     Indication: Haemophilia
     Dates: start: 20221223
  2. XYNTHA [Suspect]
     Active Substance: MOROCTOCOG ALFA
     Dosage: 1500 IU, 2X/DAY
     Route: 040
     Dates: start: 20230516
  3. XYNTHA [Suspect]
     Active Substance: MOROCTOCOG ALFA
     Dosage: 1500 IU, 2X/DAY
     Route: 040
     Dates: start: 20230522
  4. XYNTHA [Suspect]
     Active Substance: MOROCTOCOG ALFA
     Dosage: 1500 IU, 2X/DAY
     Route: 040
     Dates: start: 20230616
  5. XYNTHA [Suspect]
     Active Substance: MOROCTOCOG ALFA
     Dosage: 3000 IU, 2X/DAY (Q12H)
     Route: 040
     Dates: start: 20230716
  6. XYNTHA [Suspect]
     Active Substance: MOROCTOCOG ALFA
     Dosage: 6000 IU, 1X/DAY
     Route: 040
     Dates: start: 20230823
  7. XYNTHA [Suspect]
     Active Substance: MOROCTOCOG ALFA
     Dosage: 3000 IU, 2X/DAY (Q12H)
     Route: 040
     Dates: start: 20230922
  8. XYNTHA [Suspect]
     Active Substance: MOROCTOCOG ALFA
     Dosage: 3000 IU, 2X/DAY (Q12H)
     Route: 040
     Dates: start: 20231031
  9. XYNTHA [Suspect]
     Active Substance: MOROCTOCOG ALFA
     Dosage: 3000 IU, 2X/DAY (Q12H)
     Route: 040
     Dates: start: 20231128
  10. XYNTHA [Suspect]
     Active Substance: MOROCTOCOG ALFA
     Dosage: 3000 IU, 2X/DAY (Q12H)
     Route: 040
     Dates: start: 20231222
  11. XYNTHA [Suspect]
     Active Substance: MOROCTOCOG ALFA
     Dosage: 3000 IU, 2X/DAY (Q12H)
     Route: 040
     Dates: start: 20240426
  12. XYNTHA [Suspect]
     Active Substance: MOROCTOCOG ALFA
     Dosage: 2000 IU, 2X/DAY (Q12H)
     Route: 040
     Dates: start: 20240430
  13. XYNTHA [Suspect]
     Active Substance: MOROCTOCOG ALFA
     Dosage: 2000 IU, 2X/DAY
     Route: 040
     Dates: start: 20240606
  14. XYNTHA [Suspect]
     Active Substance: MOROCTOCOG ALFA
     Dosage: 2000 IU, 2X/DAY
     Route: 040
     Dates: start: 20240621
  15. XYNTHA [Suspect]
     Active Substance: MOROCTOCOG ALFA
     Dosage: 6000 IU, 1X/DAY
     Route: 040
     Dates: start: 20240622
  16. XYNTHA [Suspect]
     Active Substance: MOROCTOCOG ALFA
     Dosage: 3000 IU, 1X/DAY
     Route: 040
     Dates: start: 20240625
  17. XYNTHA [Suspect]
     Active Substance: MOROCTOCOG ALFA
     Dosage: 3000 IU, 1X/DAY
     Route: 040
     Dates: start: 20240808
  18. XYNTHA [Suspect]
     Active Substance: MOROCTOCOG ALFA
     Dosage: 3000 IU, 1X/DAY
     Route: 040
     Dates: start: 20240909
  19. XYNTHA [Suspect]
     Active Substance: MOROCTOCOG ALFA
     Dosage: 3000 IU, 1X/DAY
     Route: 040
     Dates: start: 20241008
  20. XYNTHA [Suspect]
     Active Substance: MOROCTOCOG ALFA
     Dosage: 3000 IU, 1X/DAY
     Route: 040
     Dates: start: 20241014
  21. XYNTHA [Suspect]
     Active Substance: MOROCTOCOG ALFA
     Dosage: 1500 IU, 2X/DAY
     Route: 040
     Dates: start: 20241028
  22. XYNTHA [Suspect]
     Active Substance: MOROCTOCOG ALFA
     Dosage: 1500 IU, 2X/DAY
     Route: 040
     Dates: start: 20241225
  23. XYNTHA [Suspect]
     Active Substance: MOROCTOCOG ALFA
     Dosage: 3000 IU, 1X/DAY
     Route: 040
     Dates: start: 20250114
  24. XYNTHA [Suspect]
     Active Substance: MOROCTOCOG ALFA
     Dosage: 3000 IU, 1X/DAY
     Route: 040
     Dates: start: 20250211
  25. XYNTHA [Suspect]
     Active Substance: MOROCTOCOG ALFA
     Dosage: 3000 IU, 1X/DAY
     Route: 040
     Dates: start: 20250321
  26. XYNTHA [Suspect]
     Active Substance: MOROCTOCOG ALFA
     Dosage: 3000 IU, 1X/DAY
     Route: 040
     Dates: start: 20250416
  27. XYNTHA [Suspect]
     Active Substance: MOROCTOCOG ALFA
     Dosage: 3000 IU, 2X/DAY (Q12H)
     Route: 040
     Dates: start: 20250514

REACTIONS (5)
  - Pain in extremity [Unknown]
  - Mobility decreased [Unknown]
  - Fall [Unknown]
  - Contusion [Unknown]
  - Peripheral swelling [Unknown]

NARRATIVE: CASE EVENT DATE: 20240601
